FAERS Safety Report 21260272 (Version 1)
Quarter: 2022Q3

REPORT INFORMATION
  Report Type: Report from Study
  Country: US (occurrence: US)
  Receive Date: 20220826
  Receipt Date: 20220826
  Transmission Date: 20221026
  Serious: Yes (Hospitalization, Other)
  Sender: FDA-Public Use
  Company Number: US-BRISTOL-MYERS SQUIBB COMPANY-2022-084593

PATIENT
  Age: 51 Year
  Sex: Male

DRUGS (1)
  1. LISOCABTAGENE MARALEUCEL [Suspect]
     Active Substance: LISOCABTAGENE MARALEUCEL
     Indication: Diffuse large B-cell lymphoma
     Dosage: ONE TIME
     Route: 065
     Dates: start: 20220725, end: 20220725

REACTIONS (3)
  - Weight decreased [Unknown]
  - Mental status changes [Unknown]
  - Hypophagia [Unknown]

NARRATIVE: CASE EVENT DATE: 20220728
